FAERS Safety Report 6812187-1 (Version None)
Quarter: 2010Q3

REPORT INFORMATION
  Report Type: 
  Country: None (occurrence: None)
  Receive Date: 20100701
  Receipt Date: 20100621
  Transmission Date: 20110219
  Serious: Yes (Other)
  Sender: FDA-Public Use
  Company Number: US-JNJFOC-20100606679

PATIENT
  Age: 24 Year
  Sex: Female

DRUGS (3)
  1. REMICADE [Suspect]
     Indication: COLITIS ULCERATIVE
     Route: 042
  2. PREDNISOLONE [Concomitant]
     Indication: COLITIS ULCERATIVE
  3. URSO 250 [Concomitant]

REACTIONS (2)
  - CHOLANGITIS SCLEROSING [None]
  - CLOSTRIDIAL INFECTION [None]
